FAERS Safety Report 8169411-5 (Version None)
Quarter: 2012Q1

REPORT INFORMATION
  Report Type: 
  Country: None (occurrence: None)
  Receive Date: 20120222
  Receipt Date: 20120215
  Transmission Date: 20120608
  Serious: Yes (Disabling)
  Sender: FDA-Public Use
  Company Number: 2012SP008466

PATIENT
  Age: 48 Year
  Sex: Female
  Weight: 89.8122 kg

DRUGS (19)
  1. GENERLAC [Suspect]
     Indication: CROHN'S DISEASE
     Dosage: 30 MG; PRN;
  2. ISOSORBIDE MONONITRATE [Suspect]
     Indication: CARDIAC DISORDER
     Dosage: 30 MG; TID;
  3. FUROSEMIDE [Suspect]
     Indication: ORAL CONTRACEPTION
     Dosage: 40 MG; BID; PO
     Route: 048
  4. DILANTIN [Suspect]
     Indication: CONVULSION
     Dosage: 300 MG; BID; PO
     Route: 048
  5. ZANTAC [Suspect]
     Indication: GASTROOESOPHAGEAL REFLUX DISEASE
     Dosage: 30 MG; TID;
  6. POTASSIUM CHLORIDE [Suspect]
     Indication: BLOOD POTASSIUM
     Dosage: 8 MEQ; QD
  7. TYLENOL-500 [Suspect]
     Indication: MIGRAINE
     Dosage: ;QD;
  8. ATIVAN [Suspect]
     Dosage: 1 MG; TID; PO
     Route: 048
  9. NORVASC [Suspect]
     Indication: PALPITATIONS
     Dosage: ;PO
     Route: 048
  10. LANTUS [Suspect]
     Indication: DIABETES MELLITUS
     Dosage: ;BID;
  11. SIMVASTATIN [Suspect]
     Indication: BLOOD CHOLESTEROL INCREASED
     Dosage: 40 MG; QD; PO
     Route: 048
  12. NITROSTAT [Suspect]
     Indication: CHEST PAIN
     Dosage: 0.4 MG; PRN;
  13. REMERON [Suspect]
     Indication: INSOMNIA
     Dosage: 30 MG; QD; PO
     Route: 048
  14. LOMOTIL [Suspect]
     Indication: CROHN'S DISEASE
     Dosage: 2.5 MG; QID; PO
     Route: 048
  15. ATENOLOL [Suspect]
     Indication: HYPERTENSION
     Dosage: 25 MG; QD; PO
     Route: 048
  16. METHOCARBAMOL [Suspect]
     Indication: MUSCLE SPASMS
     Dosage: 750 MG; PRN; PO
     Route: 048
  17. HUMULIN R [Suspect]
     Indication: DIABETES MELLITUS
     Dosage: ;TID;
  18. DEPAKOTE [Suspect]
     Indication: CONVULSION
     Dosage: 500 MG; BID; PO
     Route: 048
  19. ASPIRIN [Suspect]
     Indication: CHEST PAIN
     Dosage: 81 MG; PRN;

REACTIONS (5)
  - CHRONIC OBSTRUCTIVE PULMONARY DISEASE [None]
  - OFF LABEL USE [None]
  - EMPHYSEMA [None]
  - BEDRIDDEN [None]
  - AMNESIA [None]
